FAERS Safety Report 6856814-1 (Version None)
Quarter: 2010Q3

REPORT INFORMATION
  Report Type: 
  Country: None (occurrence: None)
  Receive Date: 20100719
  Receipt Date: 20100714
  Transmission Date: 20110219
  Serious: Yes (Hospitalization, Other)
  Sender: FDA-Public Use
  Company Number: DE-BRISTOL-MYERS SQUIBB COMPANY-15172372

PATIENT
  Age: 67 Year
  Sex: Female
  Weight: 69 kg

DRUGS (3)
  1. CETUXIMAB [Suspect]
     Indication: METASTATIC NEOPLASM
     Dosage: INF-1
     Route: 042
     Dates: start: 20100615, end: 20100615
  2. PACLITAXEL [Suspect]
     Indication: METASTATIC NEOPLASM
     Dosage: INF-1
     Route: 042
     Dates: start: 20100615, end: 20100615
  3. CARBOPLATIN [Suspect]
     Indication: METASTATIC NEOPLASM
     Dosage: INF-1
     Route: 042
     Dates: start: 20100615, end: 20100615

REACTIONS (2)
  - MUCOSAL INFLAMMATION [None]
  - PANCYTOPENIA [None]
